FAERS Safety Report 5239077-2 (Version None)
Quarter: 2007Q1

REPORT INFORMATION
  Report Type: 
  Country: None (occurrence: None)
  Receive Date: 20061208
  Receipt Date: 20050706
  Transmission Date: 20070707
  Serious: Yes (Other)
  Sender: FDA-Public Use
  Company Number: 2005UW10124

PATIENT
  Sex: Male

DRUGS (2)
  1. CRESTOR [Suspect]
     Indication: BLOOD CHOLESTEROL
     Dates: start: 20050418, end: 20050603
  2. COUMADIN [Concomitant]

REACTIONS (2)
  - PAIN IN EXTREMITY [None]
  - THROMBOSIS [None]
